FAERS Safety Report 9624235 (Version 3)
Quarter: 2013Q4

REPORT INFORMATION
  Report Type: Spontaneous
  Country: US (occurrence: US)
  Receive Date: 20131015
  Receipt Date: 20131107
  Transmission Date: 20140711
  Serious: Yes (Death, Hospitalization, Other)
  Sender: FDA-Public Use
  Company Number: US-BRISTOL-MYERS SQUIBB COMPANY-19508779

PATIENT
  Age: 69 Year
  Sex: Male

DRUGS (5)
  1. BARACLUDE TABS 1.0 MG [Suspect]
     Indication: HEPATITIS B
     Dosage: HALF TAB
     Route: 048
     Dates: start: 20121024, end: 20121208
  2. ALDACTONE [Concomitant]
  3. PROPRANOLOL [Concomitant]
  4. LACTULOSE [Concomitant]
  5. ROBAXIN [Concomitant]

REACTIONS (4)
  - Cerebrovascular accident [Fatal]
  - Hepatic cirrhosis [Unknown]
  - Plasma cell myeloma [Unknown]
  - Convulsion [Unknown]
